FAERS Safety Report 12810275 (Version 3)
Quarter: 2016Q4

REPORT INFORMATION
  Report Type: Spontaneous
  Country: US (occurrence: US)
  Receive Date: 20161005
  Receipt Date: 20161230
  Transmission Date: 20170207
  Serious: Yes (Other)
  Sender: FDA-Public Use
  Company Number: US-SUN PHARMACEUTICAL INDUSTRIES LTD-2016US-125384

PATIENT
  Age: 34 Year
  Sex: Male

DRUGS (2)
  1. QUINIDINE [Suspect]
     Active Substance: QUINIDINE
     Indication: BRUGADA SYNDROME
     Dosage: 324 MG, TID
     Route: 065
  2. CILOSTAZOL. [Suspect]
     Active Substance: CILOSTAZOL
     Indication: BRUGADA SYNDROME
     Dosage: 100 MG, BID
     Route: 065

REACTIONS (9)
  - Treatment noncompliance [Unknown]
  - Gastrointestinal disorder [Unknown]
  - Electrocardiogram QRS complex prolonged [Recovered/Resolved]
  - Hyperkalaemia [Unknown]
  - Palpitations [Unknown]
  - Drug intolerance [Unknown]
  - Electrocardiogram QT prolonged [Recovered/Resolved]
  - Electrocardiogram ST segment elevation [Recovered/Resolved]
  - Dizziness [Unknown]
